FAERS Safety Report 26196016 (Version 1)
Quarter: 2025Q4

REPORT INFORMATION
  Report Type: Spontaneous
  Country: CN (occurrence: CN)
  Receive Date: 20251224
  Receipt Date: 20251224
  Transmission Date: 20260117
  Serious: Yes (Hospitalization, Other)
  Sender: SANDOZ
  Company Number: CN-SANDOZ-SDZ2025CN096593

PATIENT
  Age: 56 Year
  Sex: Female
  Weight: 43 kg

DRUGS (1)
  1. ZOLEDRONIC ACID [Suspect]
     Active Substance: ZOLEDRONIC ACID
     Indication: Osteoporosis
     Dosage: 5 MG, Q12MO
     Dates: start: 20251210, end: 20251210

REACTIONS (3)
  - Neutrophil count decreased [Recovering/Resolving]
  - White blood cell count decreased [Recovering/Resolving]
  - Cytopenia [Recovering/Resolving]

NARRATIVE: CASE EVENT DATE: 20251211
